FAERS Safety Report 8172986-3 (Version None)
Quarter: 2012Q1

REPORT INFORMATION
  Report Type: 
  Country: None (occurrence: None)
  Receive Date: 20120223
  Receipt Date: 20120206
  Transmission Date: 20120608
  Serious: Yes (Other)
  Sender: FDA-Public Use
  Company Number: JPI-P-019740

PATIENT
  Age: 60 Year
  Sex: Female

DRUGS (4)
  1. XYREM [Suspect]
     Indication: NARCOLEPSY
     Dosage: 3 GM (1.5 GM, 2 IN 1 D), ORAL, 4.5 GM (2.25 GM, 2 IN 1 D), ORAL
     Route: 048
     Dates: start: 20090922
  2. XYREM [Suspect]
     Indication: NARCOLEPSY
     Dosage: 3 GM (1.5 GM, 2 IN 1 D), ORAL, 4.5 GM (2.25 GM, 2 IN 1 D), ORAL
     Route: 048
     Dates: start: 20090803
  3. PRASTERONE [Concomitant]
  4. ESTROGEN [Concomitant]

REACTIONS (3)
  - INFLAMMATORY CARCINOMA OF THE BREAST [None]
  - METASTASES TO MUSCLE [None]
  - BLOOD GLUCOSE DECREASED [None]
